FAERS Safety Report 5353428-X (Version None)
Quarter: 2007Q2

REPORT INFORMATION
  Report Type: 
  Country: None (occurrence: None)
  Receive Date: 20070612
  Receipt Date: 20070604
  Transmission Date: 20071010
  Serious: Yes (Hospitalization, Other)
  Sender: FDA-Public Use
  Company Number: PHEH2007US06044

PATIENT
  Age: 51 Year
  Sex: Female
  Weight: 104.76 kg

DRUGS (12)
  1. COZAAR [Concomitant]
     Route: 048
  2. PRAVACHOL [Concomitant]
     Dosage: 40 MG, QD
     Route: 048
  3. TOPAMAX [Concomitant]
     Route: 048
  4. PLAVIX [Concomitant]
     Route: 048
  5. ZETIA [Concomitant]
     Dosage: 10 MG, QD
     Route: 048
  6. ZYPREXA [Concomitant]
     Route: 048
  7. NEXIUM [Concomitant]
     Dosage: 40 MG, QD
     Route: 048
  8. BENTYL [Concomitant]
     Route: 048
  9. ACETYLSALICYLIC ACID SRT [Concomitant]
     Route: 048
  10. ZELNORM [Suspect]
     Indication: IRRITABLE BOWEL SYNDROME
     Dosage: 6 MG, BID
     Route: 048
     Dates: start: 20050712, end: 20070423
  11. AVANDIA [Concomitant]
     Dosage: 4 MG, QD
     Route: 048
  12. POTASSIUM CHLORIDE [Concomitant]
     Dosage: 10 MEQ, QD
     Route: 048

REACTIONS (4)
  - ACUTE CORONARY SYNDROME [None]
  - ANGINA PECTORIS [None]
  - MYOCARDIAL INFARCTION [None]
  - STENT PLACEMENT [None]
